FAERS Safety Report 8053441-8 (Version None)
Quarter: 2012Q1

REPORT INFORMATION
  Report Type: 
  Country: None (occurrence: None)
  Receive Date: 20120118
  Receipt Date: 20120112
  Transmission Date: 20120608
  Serious: Yes (Hospitalization)
  Sender: FDA-Public Use
  Company Number: US-GLAXOSMITHKLINE-B0730661A

PATIENT
  Age: 64 Year
  Sex: Male
  Weight: 120 kg

DRUGS (2)
  1. AVANDAMET [Suspect]
     Indication: DIABETES MELLITUS
     Route: 048
     Dates: start: 20050901, end: 20051201
  2. AVANDIA [Suspect]
     Indication: DIABETES MELLITUS
     Route: 048
     Dates: start: 20030701, end: 20091101

REACTIONS (4)
  - SURGERY [None]
  - CORONARY ARTERY BYPASS [None]
  - OSTEOMYELITIS [None]
  - MYOCARDIAL INFARCTION [None]
